FAERS Safety Report 6739749-4 (Version None)
Quarter: 2010Q2

REPORT INFORMATION
  Report Type: 
  Country: None (occurrence: None)
  Receive Date: 20100525
  Receipt Date: 20100517
  Transmission Date: 20101027
  Serious: Yes (Hospitalization)
  Sender: FDA-Public Use
  Company Number: FR-B.I. PHARMACEUTICALS,INC./RIDGEFIELD-2010-FF-00413FF

PATIENT
  Sex: Male

DRUGS (7)
  1. ATROVENT [Suspect]
     Indication: BRONCHOSPASM
     Route: 055
     Dates: start: 20091108, end: 20091117
  2. ZELITREX [Suspect]
     Indication: HERPES ZOSTER
     Route: 048
     Dates: start: 20091108, end: 20091111
  3. AUGMENTIN '125' [Suspect]
     Dosage: 3 G
     Route: 048
     Dates: start: 20091108, end: 20091117
  4. BRICANYL [Suspect]
     Indication: BRONCHOSPASM
     Route: 048
     Dates: start: 20091108, end: 20091117
  5. NEXIUM [Suspect]
     Dosage: 20 MG
     Route: 048
  6. TAMSULOSINE [Concomitant]
     Indication: BENIGN PROSTATIC HYPERPLASIA
     Route: 048
  7. TENSTATEN [Concomitant]
     Indication: HYPERTENSION
     Route: 048

REACTIONS (1)
  - CONFUSIONAL STATE [None]
